FAERS Safety Report 24247872 (Version 1)
Quarter: 2024Q3

REPORT INFORMATION
  Report Type: Spontaneous
  Country: ES (occurrence: ES)
  Receive Date: 20240826
  Receipt Date: 20240826
  Transmission Date: 20241017
  Serious: Yes (Hospitalization)
  Sender: NOVARTIS
  Company Number: None

PATIENT
  Age: 58 Year
  Sex: Male
  Weight: 70 kg

DRUGS (1)
  1. HYDROCHLOROTHIAZIDE\VALSARTAN [Suspect]
     Active Substance: HYDROCHLOROTHIAZIDE\VALSARTAN
     Indication: Hypertension
     Dosage: UNK (1 AL D?A)
     Route: 048
     Dates: start: 20240522, end: 20240810

REACTIONS (2)
  - Superior vena cava syndrome [Not Recovered/Not Resolved]
  - Mediastinal mass [Not Recovered/Not Resolved]

NARRATIVE: CASE EVENT DATE: 20240603
